FAERS Safety Report 6495814-0 (Version None)
Quarter: 2009Q4

REPORT INFORMATION
  Report Type: 
  Country: None (occurrence: None)
  Receive Date: 20091214
  Receipt Date: 20090817
  Transmission Date: 20100525
  Serious: No
  Sender: FDA-Public Use
  Company Number: US-BRISTOL-MYERS SQUIBB COMPANY-14742969

PATIENT
  Age: 49 Year
  Sex: Female
  Weight: 83 kg

DRUGS (7)
  1. ABILIFY [Suspect]
     Indication: DEPRESSION
  2. ABILIFY [Suspect]
     Indication: PSYCHOTIC DISORDER
  3. ABILIFY [Suspect]
     Indication: POST-TRAUMATIC STRESS DISORDER
  4. ABILIFY [Suspect]
     Indication: ANXIETY
  5. SEROQUEL [Concomitant]
  6. LAMICTAL [Concomitant]
  7. CYMBALTA [Concomitant]

REACTIONS (1)
  - HOT FLUSH [None]
